FAERS Safety Report 24738241 (Version 2)
Quarter: 2025Q3

REPORT INFORMATION
  Report Type: Spontaneous
  Country: JP (occurrence: JP)
  Receive Date: 20241216
  Receipt Date: 20250802
  Transmission Date: 20251020
  Serious: Yes (Hospitalization, Other)
  Sender: RECORDATI
  Company Number: JP-ORPHANEU-2024009800

PATIENT
  Age: 8 Year
  Sex: Female
  Weight: 17 kg

DRUGS (11)
  1. CARBAGLU [Suspect]
     Active Substance: CARGLUMIC ACID
     Indication: Hyperammonaemia
     Dosage: 800 MG/DAY (48 MG/KG/DAY)
     Route: 048
     Dates: start: 20190613
  2. CARBAGLU [Suspect]
     Active Substance: CARGLUMIC ACID
     Indication: Propionic acidaemia
  3. Cinal [Concomitant]
     Indication: Product used for unknown indication
     Dosage: 4.5 MILLIGRAM DAILY, TID
     Route: 048
  4. ALINAMIN F [Concomitant]
     Active Substance: FURSULTIAMINE HYDROCHLORIDE
     Indication: Product used for unknown indication
     Dosage: 112.5 MILLIGRAM DAILY, TID
     Route: 048
  5. FLAGYL [Concomitant]
     Active Substance: METRONIDAZOLE\METRONIDAZOLE HYDROCHLORIDE
     Indication: Product used for unknown indication
     Dosage: 40 MG, TIW, TABLET
     Route: 048
  6. BIOTIN [Concomitant]
     Active Substance: BIOTIN
     Indication: Product used for unknown indication
     Dosage: 3 MILLIGRAM DAILY, TID
     Route: 048
  7. SODIUM BENZOATE [Concomitant]
     Active Substance: SODIUM BENZOATE
     Indication: Product used for unknown indication
     Dosage: 3.3 GRAM DAILY, TID
     Route: 048
     Dates: start: 2015, end: 20190707
  8. SODIUM BENZOATE [Concomitant]
     Active Substance: SODIUM BENZOATE
     Dosage: 2.6 GRAM DAILY, TID
     Route: 048
     Dates: start: 20190708, end: 20190807
  9. SODIUM BENZOATE [Concomitant]
     Active Substance: SODIUM BENZOATE
     Dosage: 1.7 GRAM DAILY, TID
     Route: 048
     Dates: start: 20190808
  10. Elcartin [Concomitant]
     Indication: Product used for unknown indication
     Dosage: 30 MILLILITER DAILY, TID
     Route: 048
     Dates: end: 20230208
  11. Elcartin [Concomitant]
     Dosage: 60 MILLILITER DAILY, TID
     Route: 048
     Dates: start: 20230209

REACTIONS (4)
  - General physical health deterioration [Recovered/Resolved]
  - Depressed level of consciousness [Recovered/Resolved]
  - Seizure [Unknown]
  - Anaemia [Unknown]

NARRATIVE: CASE EVENT DATE: 20230406
